FAERS Safety Report 12270837 (Version 2)
Quarter: 2016Q3

REPORT INFORMATION
  Report Type: Spontaneous
  Country: US (occurrence: US)
  Receive Date: 20160415
  Receipt Date: 20160713
  Transmission Date: 20161109
  Serious: No
  Sender: FDA-Public Use
  Company Number: US-TEVA-633684USA

PATIENT
  Age: 51 Year
  Sex: Female

DRUGS (30)
  1. ZANAFLEX [Concomitant]
     Active Substance: TIZANIDINE HYDROCHLORIDE
     Indication: MUSCLE SPASMS
     Dosage: 1 EVERY 6 HOURS AS NEEDED
     Dates: start: 20131108
  2. ASPIRIN. [Concomitant]
     Active Substance: ASPIRIN
     Dates: start: 20130507
  3. BYSTOLIC [Concomitant]
     Active Substance: NEBIVOLOL HYDROCHLORIDE
     Dosage: 2.5 MILLIGRAM DAILY;
     Route: 048
     Dates: start: 20150609
  4. PROGESTERONE SR [Concomitant]
     Dosage: 50 MILLIGRAM DAILY; AT BEDTIME
     Dates: start: 20150609
  5. OMEPRAZOLE. [Concomitant]
     Active Substance: OMEPRAZOLE
     Dosage: 20 MILLIGRAM DAILY;
     Route: 048
     Dates: start: 20150713
  6. PENICILLIN [Concomitant]
     Active Substance: PENICILLIN
  7. MORPHINE [Concomitant]
     Active Substance: MORPHINE
  8. LISINOPRIL. [Concomitant]
     Active Substance: LISINOPRIL
  9. DIOVAN [Concomitant]
     Active Substance: VALSARTAN
     Dosage: 320-25 MG
     Dates: start: 20130807
  10. ZOFRAN [Concomitant]
     Active Substance: ONDANSETRON HYDROCHLORIDE
     Indication: NAUSEA
     Dosage: 1 AS NEEDED
     Route: 060
     Dates: start: 20130409
  11. DICYCLOMINE [Concomitant]
     Active Substance: DICYCLOMINE HYDROCHLORIDE
     Dosage: 20 MILLIGRAM DAILY;
     Dates: start: 20130409
  12. KLONOPIN [Concomitant]
     Active Substance: CLONAZEPAM
     Dates: start: 20130507
  13. FLUTICASONE [Concomitant]
     Active Substance: FLUTICASONE\FLUTICASONE PROPIONATE
     Dosage: 1 TO 2 SPRAYS DAILY EACH NOSTRIL
     Route: 045
     Dates: start: 20150713
  14. NORVASC [Concomitant]
     Active Substance: AMLODIPINE BESYLATE
  15. ASPIRIN. [Concomitant]
     Active Substance: ASPIRIN
     Dates: start: 20130507
  16. TOPAMAX [Concomitant]
     Active Substance: TOPIRAMATE
     Dosage: 100 MILLIGRAM DAILY;
     Route: 048
     Dates: start: 20150609
  17. EPIPEN [Concomitant]
     Active Substance: EPINEPHRINE
     Dosage: AS DIRECTED
     Dates: start: 20160419
  18. REQUIP [Concomitant]
     Active Substance: ROPINIROLE HYDROCHLORIDE
     Dates: start: 20131105
  19. LIPITOR [Concomitant]
     Active Substance: ATORVASTATIN CALCIUM
     Dates: start: 20130507
  20. VOLTAREN [Concomitant]
     Active Substance: DICLOFENAC SODIUM
     Dosage: AS DIRECTED
     Route: 062
     Dates: start: 20151222
  21. LOPRESSOR [Concomitant]
     Active Substance: METOPROLOL TARTRATE
  22. CYMBALTA [Concomitant]
     Active Substance: DULOXETINE HYDROCHLORIDE
     Dosage: 60 MILLIGRAM DAILY;
     Route: 048
     Dates: start: 20130903
  23. ARTHROTEC [Concomitant]
     Active Substance: DICLOFENAC SODIUM\MISOPROSTOL
     Dosage: 75-0.2MG
     Dates: start: 20140913
  24. TRAZODONE [Concomitant]
     Active Substance: TRAZODONE HYDROCHLORIDE
     Dosage: 150 MILLIGRAM DAILY;
     Route: 048
     Dates: start: 20150609
  25. LAMICTAL [Concomitant]
     Active Substance: LAMOTRIGINE
     Dosage: 400 MILLIGRAM DAILY;
     Dates: start: 20130507
  26. MONTELUKAST SODIUM. [Concomitant]
     Active Substance: MONTELUKAST SODIUM
     Dosage: 10 MILLIGRAM DAILY;
     Route: 048
     Dates: start: 20150713
  27. GABAPENTIN. [Concomitant]
     Active Substance: GABAPENTIN
     Route: 048
     Dates: start: 20150928
  28. CIPRO [Concomitant]
     Active Substance: CIPROFLOXACIN HYDROCHLORIDE
     Dosage: 1000 MILLIGRAM DAILY;
     Route: 048
     Dates: start: 20160412
  29. ZECUITY [Suspect]
     Active Substance: SUMATRIPTAN SUCCINATE
     Route: 062
  30. MEDROL [Concomitant]
     Active Substance: METHYLPREDNISOLONE
     Dosage: AS DIRECTED
     Dates: start: 20160419

REACTIONS (4)
  - Allodynia [Recovering/Resolving]
  - Application site vesicles [Recovering/Resolving]
  - Incorrect drug administration duration [Unknown]
  - Application site erythema [Not Recovered/Not Resolved]

NARRATIVE: CASE EVENT DATE: 20160128
